APPROVED DRUG PRODUCT: DEXTROSE 5% IN PLASTIC CONTAINER
Active Ingredient: DEXTROSE
Strength: 50MG/ML
Dosage Form/Route: INJECTABLE;INJECTION
Application: N019222 | Product #001
Applicant: ICU MEDICAL INC
Approved: Jul 13, 1984 | RLD: Yes | RS: No | Type: DISCN